FAERS Safety Report 5040647-5 (Version None)
Quarter: 2006Q2

REPORT INFORMATION
  Report Type: 
  Country: None (occurrence: None)
  Receive Date: 20060630
  Receipt Date: 20060630
  Transmission Date: 20061013
  Serious: Yes (Hospitalization, Other)
  Sender: FDA-Public Use
  Company Number: None

PATIENT
  Age: 28 Year
  Sex: Female
  Weight: 101 kg

DRUGS (1)
  1. ORTHO EVRA [Suspect]
     Indication: CONTRACEPTION
     Dosage: 150/20 ONCE A WEEK TRANSDERMAL
     Route: 062
     Dates: start: 20050301, end: 20060301

REACTIONS (1)
  - DEEP VEIN THROMBOSIS [None]
